FAERS Safety Report 20680574 (Version 1)
Quarter: 2022Q2

REPORT INFORMATION
  Report Type: Spontaneous
  Country: US (occurrence: None)
  Receive Date: 20220405
  Receipt Date: 20220405
  Transmission Date: 20220721
  Serious: Yes (Hospitalization, Other)
  Sender: FDA-Public Use
  Company Number: None

PATIENT
  Age: 56 Year
  Sex: Male

DRUGS (2)
  1. VANCOMYCIN [Suspect]
     Active Substance: VANCOMYCIN
     Indication: Infection
     Dates: start: 20211219, end: 20220103
  2. PIPERACILLIN SODIUM\TAZOBACTAM SODIUM [Suspect]
     Active Substance: PIPERACILLIN SODIUM\TAZOBACTAM SODIUM
     Indication: Infection
     Dates: start: 20211221, end: 20220207

REACTIONS (5)
  - Haemofiltration [None]
  - Device malfunction [None]
  - Acute kidney injury [None]
  - Renal tubular necrosis [None]
  - Nephropathy toxic [None]

NARRATIVE: CASE EVENT DATE: 20220102
